FAERS Safety Report 12548557 (Version 1)
Quarter: 2016Q3

REPORT INFORMATION
  Report Type: Spontaneous
  Country: US (occurrence: US)
  Receive Date: 20160712
  Receipt Date: 20160712
  Transmission Date: 20161109
  Serious: No
  Sender: FDA-Public Use
  Company Number: US-TEVA-657887USA

PATIENT
  Sex: Female

DRUGS (1)
  1. TOBRAMYCIN. [Suspect]
     Active Substance: TOBRAMYCIN
     Dates: start: 2014

REACTIONS (4)
  - Pollakiuria [Unknown]
  - Tinnitus [Unknown]
  - Rash [Unknown]
  - Dyspnoea [Unknown]
